FAERS Safety Report 5623880-0 (Version None)
Quarter: 2008Q1

REPORT INFORMATION
  Report Type: 
  Country: None (occurrence: None)
  Receive Date: 20080207
  Receipt Date: 20080122
  Transmission Date: 20080703
  Serious: Yes (Other)
  Sender: FDA-Public Use
  Company Number: 8029021

PATIENT
  Age: 75 Year
  Sex: Male

DRUGS (3)
  1. KEPPRA [Suspect]
     Indication: PARTIAL SEIZURES
     Dosage: PO
     Route: 048
     Dates: start: 20061101
  2. LAMICTAL [Concomitant]
  3. CORTICOID [Concomitant]

REACTIONS (3)
  - PRURITUS [None]
  - SKIN PLAQUE [None]
  - TOXIC SKIN ERUPTION [None]
